FAERS Safety Report 7310813-4 (Version None)
Quarter: 2011Q1

REPORT INFORMATION
  Report Type: 
  Country: None (occurrence: None)
  Receive Date: 20110224
  Receipt Date: 20110221
  Transmission Date: 20110831
  Serious: Yes (Death, Other)
  Sender: FDA-Public Use
  Company Number: PHHY2011JP14382

PATIENT
  Sex: Female
  Weight: 50 kg

DRUGS (8)
  1. GLAKAY [Concomitant]
     Indication: PROPHYLAXIS
     Dosage: 45 MG, UNK
     Route: 048
     Dates: start: 20090328
  2. RED BLOOD CELLS, CONCENTRATED [Concomitant]
     Dosage: 02 UNITS EACH TIME
     Dates: start: 20080328, end: 20090711
  3. NASANYL [Concomitant]
     Indication: PROPHYLAXIS
     Dosage: 02 DF, UNK
     Dates: start: 20090328
  4. EXJADE [Suspect]
     Indication: MYELODYSPLASTIC SYNDROME
     Dosage: 1000 MG DAILY
     Route: 048
     Dates: start: 20090328, end: 20090513
  5. TAKEPRON [Concomitant]
     Indication: PROPHYLAXIS
     Dosage: 15 MG, UNK
     Route: 048
     Dates: start: 20090328
  6. ADONA [Concomitant]
     Indication: PROPHYLAXIS
     Dosage: 90 MG, UNK
     Route: 048
     Dates: start: 20090328
  7. ALFAROL [Concomitant]
     Indication: PROPHYLAXIS
     Dosage: 03 DF, UNK
     Route: 048
     Dates: start: 20090328
  8. BLOOD TRANSFUSION, AUXILIARY PRODUCTS [Concomitant]
     Dosage: UNK
     Dates: start: 20090328

REACTIONS (7)
  - PLATELET COUNT DECREASED [None]
  - HAEMATOCRIT DECREASED [None]
  - VOMITING [None]
  - RED BLOOD CELL COUNT DECREASED [None]
  - HAEMOGLOBIN DECREASED [None]
  - DEATH [None]
  - NAUSEA [None]
